FAERS Safety Report 17840035 (Version 10)
Quarter: 2020Q4

REPORT INFORMATION
  Report Type: Spontaneous
  Country: US (occurrence: US)
  Receive Date: 20200529
  Receipt Date: 20201022
  Transmission Date: 20210113
  Serious: No
  Sender: FDA-Public Use
  Company Number: US-BIOGEN-2020BI00873665

PATIENT
  Age: 40 Year
  Sex: Female

DRUGS (6)
  1. VITAMIN D [Concomitant]
     Active Substance: VITAMIN D NOS
     Route: 065
  2. TECFIDERA [Suspect]
     Active Substance: DIMETHYL FUMARATE
     Indication: MULTIPLE SCLEROSIS
     Route: 048
     Dates: start: 20200507, end: 20200513
  3. TECFIDERA [Suspect]
     Active Substance: DIMETHYL FUMARATE
     Dosage: TAKE 1 CAPSULE (240MG)  BY MOUTH TWICE DAILY (START AFTER COMPLETING ONE WEEK OF 120 MG DOSAGE)
     Route: 048
     Dates: start: 20200514
  4. TECFIDERA [Suspect]
     Active Substance: DIMETHYL FUMARATE
     Route: 065
     Dates: start: 202005
  5. TECFIDERA [Suspect]
     Active Substance: DIMETHYL FUMARATE
     Route: 048
     Dates: start: 2020
  6. IRON [Concomitant]
     Active Substance: IRON
     Route: 065

REACTIONS (20)
  - Formication [Unknown]
  - Multiple sclerosis [Unknown]
  - Feeling abnormal [Recovered/Resolved]
  - Product dose omission issue [Unknown]
  - Discomfort [Unknown]
  - Inappropriate schedule of product administration [Recovered/Resolved]
  - Urinary tract infection [Not Recovered/Not Resolved]
  - Nausea [Not Recovered/Not Resolved]
  - Pruritus [Unknown]
  - Abdominal pain upper [Recovered/Resolved]
  - Malaise [Unknown]
  - Drug ineffective [Unknown]
  - Paraesthesia [Unknown]
  - Mental impairment [Unknown]
  - Headache [Unknown]
  - Limb discomfort [Unknown]
  - Eyelid margin crusting [Unknown]
  - Abdominal discomfort [Recovered/Resolved]
  - Ocular hyperaemia [Unknown]
  - Flushing [Recovered/Resolved with Sequelae]

NARRATIVE: CASE EVENT DATE: 202005
